FAERS Safety Report 5622083-3 (Version None)
Quarter: 2008Q1

REPORT INFORMATION
  Report Type: 
  Country: None (occurrence: None)
  Receive Date: 20080211
  Receipt Date: 20080207
  Transmission Date: 20080703
  Serious: Yes (Hospitalization)
  Sender: FDA-Public Use
  Company Number: FR-MERCK-0703FRA00069

PATIENT
  Age: 72 Year
  Sex: Female

DRUGS (5)
  1. COZAAR [Suspect]
     Indication: HYPERTENSION
     Route: 048
     Dates: start: 20070101, end: 20070601
  2. COZAAR [Suspect]
     Route: 048
     Dates: start: 20070601, end: 20070101
  3. COZAAR [Suspect]
     Route: 048
     Dates: start: 20070101
  4. LERCANIDIPINE [Concomitant]
     Indication: HYPERTENSION
     Route: 048
     Dates: start: 20060401, end: 20070401
  5. CALCIUM CARBONATE AND CHOLECALCIFEROL [Concomitant]
     Route: 048

REACTIONS (4)
  - COLECTOMY [None]
  - FEELING COLD [None]
  - HEADACHE [None]
  - THROAT IRRITATION [None]
